FAERS Safety Report 8850351 (Version 2)
Quarter: 2013Q4

REPORT INFORMATION
  Report Type: Report from Study
  Country: DE (occurrence: DE)
  Receive Date: 20121019
  Receipt Date: 20131101
  Transmission Date: 20140711
  Serious: Yes (Hospitalization)
  Sender: FDA-Public Use
  Company Number: DE-BAXTER-2012BAX019561

PATIENT
  Age: 66 Year
  Sex: Male
  Weight: 73 kg

DRUGS (19)
  1. ENDOXAN 1G [Suspect]
     Indication: B-CELL LYMPHOMA
     Route: 042
     Dates: start: 20111124
  2. ENDOXAN 1G [Suspect]
     Route: 042
     Dates: start: 20120308
  3. RITUXIMAB [Suspect]
     Indication: B-CELL LYMPHOMA
     Route: 042
     Dates: start: 20111124
  4. RITUXIMAB [Suspect]
     Route: 042
     Dates: start: 20120308
  5. RITUXIMAB [Suspect]
     Dosage: VOLUME TAKEN 710ML
     Route: 042
     Dates: start: 20120329
  6. RITUXIMAB [Suspect]
     Dosage: VOLUME TAKEN 710ML
     Route: 042
     Dates: start: 20120329
  7. DOXORUBICIN [Suspect]
     Indication: B-CELL LYMPHOMA
     Route: 042
     Dates: start: 20111124
  8. DOXORUBICIN [Suspect]
     Route: 042
     Dates: start: 20120308
  9. VINCRISTINE [Suspect]
     Indication: B-CELL LYMPHOMA
     Route: 042
  10. VINCRISTINE [Suspect]
     Route: 042
     Dates: start: 20120308
  11. PREDNISONE [Suspect]
     Indication: B-CELL LYMPHOMA
     Route: 048
     Dates: start: 20111124
  12. PREDNISONE [Suspect]
     Route: 048
     Dates: start: 20120312
  13. RANITIDINE [Concomitant]
     Indication: PROPHYLAXIS
     Route: 065
     Dates: start: 20111124
  14. PARACETAMOL [Concomitant]
     Indication: PROPHYLAXIS
     Route: 065
     Dates: start: 20111124
  15. FILGRASTIM [Concomitant]
     Indication: NEUTROPENIA
     Route: 065
     Dates: start: 20111208
  16. METOCLOPRAMIDE [Concomitant]
     Indication: VOMITING
     Route: 065
     Dates: start: 20111215
  17. PANTOPRAZOLE [Concomitant]
     Indication: PROPHYLAXIS
     Route: 065
     Dates: start: 20111215
  18. DIPYRONE [Concomitant]
     Indication: INFECTION PROPHYLAXIS
     Route: 065
     Dates: start: 20120313
  19. LACTULOSE [Concomitant]
     Indication: CONSTIPATION
     Route: 065
     Dates: start: 20120319

REACTIONS (2)
  - Spinal fracture [Not Recovered/Not Resolved]
  - Spinal pain [Recovered/Resolved]
